FAERS Safety Report 4826244-2 (Version None)
Quarter: 2005Q4

REPORT INFORMATION
  Report Type: 
  Country: None (occurrence: None)
  Receive Date: 20051109
  Receipt Date: 20051109
  Transmission Date: 20060501
  Serious: Yes (Death)
  Sender: FDA-Public Use
  Company Number: None

PATIENT
  Age: 13 Year
  Sex: Female
  Weight: 159 kg

DRUGS (1)
  1. RITUXIMAB 825 MG [Suspect]

REACTIONS (3)
  - CARDIAC ARREST [None]
  - DIZZINESS [None]
  - INFUSION RELATED REACTION [None]
